FAERS Safety Report 8494981-7 (Version None)
Quarter: 2012Q3

REPORT INFORMATION
  Report Type: 
  Country: None (occurrence: None)
  Receive Date: 20120702
  Receipt Date: 20120702
  Transmission Date: 20120928
  Serious: Yes (Hospitalization)
  Sender: FDA-Public Use
  Company Number: None

PATIENT
  Sex: Male
  Weight: 76.5 kg

DRUGS (2)
  1. XGEVA [Suspect]
     Indication: PROSTATE CANCER
     Dosage: 120MG MONTHLY IV
     Route: 042
     Dates: start: 20111207
  2. XGEVA [Suspect]
     Indication: PROSTATE CANCER
     Dosage: 120MG MONTHLY IV
     Route: 042
     Dates: start: 20120607

REACTIONS (1)
  - HYPOCALCAEMIA [None]
